FAERS Safety Report 6111094-X (Version None)
Quarter: 2009Q1

REPORT INFORMATION
  Report Type: 
  Country: None (occurrence: None)
  Receive Date: 20090309
  Receipt Date: 20090309
  Transmission Date: 20090719
  Serious: Yes (Other)
  Sender: FDA-Public Use
  Company Number: None

PATIENT
  Age: 47 Year
  Sex: Female
  Weight: 55.7924 kg

DRUGS (1)
  1. DIFFERIN [Suspect]
     Indication: ACNE
     Dosage: GREEN TEA SIZE AMOUNT HS TOP ONE TO TWO YEARS OF EACH
     Route: 061

REACTIONS (9)
  - ACNE [None]
  - FUNGAL SKIN INFECTION [None]
  - FURUNCLE [None]
  - HERPES ZOSTER [None]
  - PAIN [None]
  - SCAR [None]
  - SECRETION DISCHARGE [None]
  - SKIN BURNING SENSATION [None]
  - SKIN EXFOLIATION [None]
